FAERS Safety Report 10574189 (Version 2)
Quarter: 2014Q4

REPORT INFORMATION
  Report Type: Spontaneous
  Country: US (occurrence: US)
  Receive Date: 20141110
  Receipt Date: 20141120
  Transmission Date: 20150529
  Serious: Yes (Death, Life-Threatening, Hospitalization, Other)
  Sender: FDA-Public Use
  Company Number: US-009507513-1411USA003265

PATIENT
  Sex: Male
  Weight: 92.97 kg

DRUGS (2)
  1. JANUVIA [Suspect]
     Active Substance: SITAGLIPTIN PHOSPHATE
     Dosage: 100 MG, QD
     Route: 048
     Dates: start: 2012, end: 201302
  2. JANUVIA [Suspect]
     Active Substance: SITAGLIPTIN PHOSPHATE
     Indication: TYPE 2 DIABETES MELLITUS
     Dosage: 100 MG, QD
     Route: 048
     Dates: start: 20100421, end: 2012

REACTIONS (19)
  - Renal cyst [Unknown]
  - Pancreatic carcinoma metastatic [Fatal]
  - Metastases to lymph nodes [Unknown]
  - Mental status changes [Recovered/Resolved]
  - Aortic arteriosclerosis [Unknown]
  - Exposure to toxic agent [Unknown]
  - Diabetes mellitus inadequate control [Unknown]
  - Chemotherapy [Unknown]
  - Biopsy pancreas [Unknown]
  - Type V hyperlipidaemia [Unknown]
  - Gastrooesophageal reflux disease [Unknown]
  - Radiotherapy to skin [Unknown]
  - Pulmonary mass [Unknown]
  - Metastases to central nervous system [Unknown]
  - Erectile dysfunction [Unknown]
  - Herpes simplex [Unknown]
  - Biopsy pancreas [Unknown]
  - Hepatic lesion [Unknown]
  - Anaemia [Unknown]

NARRATIVE: CASE EVENT DATE: 201110
